FAERS Safety Report 8451186-3 (Version None)
Quarter: 2012Q2

REPORT INFORMATION
  Report Type: 
  Country: None (occurrence: None)
  Receive Date: 20120620
  Receipt Date: 20120227
  Transmission Date: 20120825
  Serious: No
  Sender: FDA-Public Use
  Company Number: US-VERTEX PHARMACEUTICALS INC.-AE-2011-003437

PATIENT
  Sex: Male
  Weight: 87.168 kg

DRUGS (3)
  1. PEGASYS [Concomitant]
     Indication: HEPATITIS C
     Route: 058
     Dates: start: 20110817, end: 20120208
  2. INCIVEK [Suspect]
     Indication: HEPATITIS C
     Route: 048
     Dates: start: 20110817, end: 20111111
  3. RIBAVIRIN [Concomitant]
     Indication: HEPATITIS C
     Route: 048
     Dates: start: 20110817, end: 20120208

REACTIONS (5)
  - ORAL CANDIDIASIS [None]
  - SINUS HEADACHE [None]
  - PRURITUS [None]
  - NASAL CONGESTION [None]
  - ALOPECIA [None]
